FAERS Safety Report 7821306-X (Version None)
Quarter: 2011Q4

REPORT INFORMATION
  Report Type: 
  Country: None (occurrence: None)
  Receive Date: 20111018
  Receipt Date: 20101220
  Transmission Date: 20120403
  Serious: No
  Sender: FDA-Public Use
  Company Number: US-ASTRAZENECA-2010SE59937

PATIENT
  Age: 64 Year
  Sex: Female
  Weight: 70.3 kg

DRUGS (2)
  1. SYMBICORT [Suspect]
     Indication: ASTHMA
     Dosage: 160MCG TWO TIMES A DAY
     Route: 055
     Dates: start: 20091101, end: 20101201
  2. SYMBICORT [Suspect]
     Dosage: 160 MCG DAILY
     Route: 055
     Dates: start: 20101201

REACTIONS (2)
  - INAPPROPRIATE SCHEDULE OF DRUG ADMINISTRATION [None]
  - CHEST DISCOMFORT [None]
